FAERS Safety Report 24196199 (Version 1)
Quarter: 2024Q3

REPORT INFORMATION
  Report Type: Spontaneous
  Country: FR (occurrence: FR)
  Receive Date: 20240809
  Receipt Date: 20240809
  Transmission Date: 20241017
  Serious: Yes (Other)
  Sender: ELI LILLY AND CO
  Company Number: FR-ELI_LILLY_AND_COMPANY-FR202408000627

PATIENT
  Age: 47 Year
  Sex: Male

DRUGS (1)
  1. HUMALOG [Suspect]
     Active Substance: INSULIN LISPRO
     Indication: Product used for unknown indication
     Dosage: UNK UNK, UNKNOWN
     Route: 065

REACTIONS (7)
  - Myocardial infarction [Unknown]
  - Carpal tunnel syndrome [Unknown]
  - Ocular icterus [Unknown]
  - Hyperglycaemia [Unknown]
  - Road traffic accident [Unknown]
  - Headache [Unknown]
  - Hypoglycaemia [Unknown]
